FAERS Safety Report 15551666 (Version 1)
Quarter: 2018Q4

REPORT INFORMATION
  Report Type: Spontaneous
  Country: US (occurrence: US)
  Receive Date: 20181025
  Receipt Date: 20181025
  Transmission Date: 20190205
  Serious: No
  Sender: FDA-Public Use
  Company Number: US-TAKEDA-2018MPI013672

PATIENT
  Sex: Female
  Weight: 57.14 kg

DRUGS (1)
  1. NINLARO [Suspect]
     Active Substance: IXAZOMIB CITRATE
     Indication: PLASMA CELL MYELOMA
     Dosage: 3 MG, UNK
     Route: 048
     Dates: start: 20180815

REACTIONS (4)
  - Confusional state [Unknown]
  - Decreased appetite [Unknown]
  - Platelet count decreased [Unknown]
  - Fatigue [Unknown]
